FAERS Safety Report 9681242 (Version 1)
Quarter: 2013Q4

REPORT INFORMATION
  Report Type: Report from Study
  Country: US (occurrence: US)
  Receive Date: 20131111
  Receipt Date: 20131111
  Transmission Date: 20140711
  Serious: Yes (Hospitalization, Other)
  Sender: FDA-Public Use
  Company Number: US-ABBVIE-13P-163-1165729-00

PATIENT
  Sex: Female
  Weight: 127.12 kg

DRUGS (14)
  1. HUMIRA [Suspect]
     Indication: RHEUMATOID ARTHRITIS
  2. CLONIDINE [Concomitant]
     Indication: HYPERTENSION
  3. LORATADINE [Concomitant]
     Indication: HYPERSENSITIVITY
  4. RANITIDINE [Concomitant]
     Indication: GASTROOESOPHAGEAL REFLUX DISEASE
  5. FOLIC ACID [Concomitant]
     Indication: RHEUMATOID ARTHRITIS
  6. PRAVASTATIN SODIUM [Concomitant]
     Indication: BLOOD CHOLESTEROL INCREASED
  7. PREDNISONE [Concomitant]
     Indication: RHEUMATOID ARTHRITIS
  8. METOPROLOL TARTRATE [Concomitant]
     Indication: CARDIAC FAILURE CONGESTIVE
  9. ROXICET [Concomitant]
     Indication: PAIN
  10. ALBUTEROL [Concomitant]
     Indication: ASTHMA
  11. ALPRAZOLAM [Concomitant]
     Indication: ANXIETY
  12. HYDROCODONE [Concomitant]
     Indication: PAIN
  13. MECLIZINE [Concomitant]
     Indication: VERTIGO
  14. PROMETHAZINE [Concomitant]
     Indication: NAUSEA

REACTIONS (2)
  - Renal failure [Not Recovered/Not Resolved]
  - Fluid overload [Recovered/Resolved]
